FAERS Safety Report 7124464-8 (Version None)
Quarter: 2010Q4

REPORT INFORMATION
  Report Type: 
  Country: None (occurrence: None)
  Receive Date: 20101126
  Receipt Date: 20101115
  Transmission Date: 20110411
  Serious: Yes (Hospitalization)
  Sender: FDA-Public Use
  Company Number: US-ELI_LILLY_AND_COMPANY-US201009001303

PATIENT
  Sex: Female
  Weight: 75.5 kg

DRUGS (6)
  1. HUMALOG [Suspect]
     Indication: TYPE 1 DIABETES MELLITUS
     Dosage: 3 U, UNK
     Route: 058
     Dates: start: 20100809
  2. PROAIR HFA [Concomitant]
     Indication: ASTHMA
     Dates: start: 19890101
  3. ADVAIR DISKUS 100/50 [Concomitant]
     Indication: ASTHMA
     Dates: start: 20080101
  4. ZYRTEC [Concomitant]
     Indication: SEASONAL ALLERGY
     Dates: start: 20100818
  5. INSULIN LISPRO [Concomitant]
     Indication: TYPE 1 DIABETES MELLITUS
     Dates: start: 20010101
  6. INFLUENZA [Concomitant]
     Dates: start: 20100830, end: 20100830

REACTIONS (1)
  - DIABETIC KETOACIDOSIS [None]
